FAERS Safety Report 23074484 (Version 1)
Quarter: 2023Q4

REPORT INFORMATION
  Report Type: Spontaneous
  Country: TR (occurrence: TR)
  Receive Date: 20231017
  Receipt Date: 20231017
  Transmission Date: 20240110
  Serious: Yes (Other)
  Sender: FDA-Public Use
  Company Number: TR-LEADINGPHARMA-TR-2023LEALIT00290

PATIENT
  Age: 55 Year
  Sex: Male

DRUGS (2)
  1. LIDOCAINE [Suspect]
     Active Substance: LIDOCAINE
     Indication: Nerve block
     Route: 056
  2. BUPIVACAINE [Suspect]
     Active Substance: BUPIVACAINE
     Indication: Nerve block
     Route: 056

REACTIONS (4)
  - Deafness bilateral [Recovered/Resolved]
  - Respiratory distress [Recovered/Resolved]
  - Confusional state [Recovered/Resolved]
  - Product use issue [Unknown]
